FAERS Safety Report 6801311-2 (Version None)
Quarter: 2010Q2

REPORT INFORMATION
  Report Type: 
  Country: None (occurrence: None)
  Receive Date: 20100629
  Receipt Date: 20100624
  Transmission Date: 20101027
  Serious: Yes (Other)
  Sender: FDA-Public Use
  Company Number: US-ROCHE-698483

PATIENT
  Sex: Female

DRUGS (2)
  1. PEGASYS [Suspect]
     Indication: HEPATITIS C
     Dosage: FORM:PRE FILLED SYRINGE
     Route: 058
     Dates: start: 20100108, end: 20100618
  2. RIBAVIRIN [Suspect]
     Indication: HEPATITIS C
     Dosage: DIVIDED DOSES
     Route: 048
     Dates: start: 20100108, end: 20100618

REACTIONS (7)
  - BACK PAIN [None]
  - DYSPNOEA [None]
  - HOT FLUSH [None]
  - HYPERAESTHESIA [None]
  - IRRITABILITY [None]
  - LUNG DISORDER [None]
  - PYREXIA [None]
